FAERS Safety Report 22256016 (Version 2)
Quarter: 2023Q2

REPORT INFORMATION
  Report Type: Spontaneous
  Country: IE (occurrence: IE)
  Receive Date: 20230426
  Receipt Date: 20230505
  Transmission Date: 20230721
  Serious: Yes (Hospitalization, Other)
  Sender: FDA-Public Use
  Company Number: IE-MLMSERVICE-20230417-4229465-1

PATIENT
  Age: 71 Year
  Sex: Female

DRUGS (3)
  1. TRIAMCINOLONE ACETONIDE [Suspect]
     Active Substance: TRIAMCINOLONE ACETONIDE
     Dosage: UNK
     Route: 014
     Dates: start: 20190821
  2. CARBOXYMETHYLCELLULOSE [Suspect]
     Active Substance: CARBOXYMETHYLCELLULOSE
     Dosage: UNK
     Route: 014
     Dates: start: 20190821
  3. BUPIVACAINE [Concomitant]
     Active Substance: BUPIVACAINE
     Indication: Local anaesthesia
     Dosage: UNK
     Route: 014
     Dates: start: 20190821

REACTIONS (4)
  - Hypersensitivity [Recovering/Resolving]
  - Throat tightness [Recovering/Resolving]
  - Swollen tongue [Recovering/Resolving]
  - Urticaria [Recovering/Resolving]

NARRATIVE: CASE EVENT DATE: 20190821
